FAERS Safety Report 19768509 (Version 1)
Quarter: 2021Q3

REPORT INFORMATION
  Report Type: Spontaneous
  Country: US (occurrence: US)
  Receive Date: 20210830
  Receipt Date: 20210830
  Transmission Date: 20211014
  Serious: Yes (Other)
  Sender: FDA-Public Use
  Company Number: US-PFIZER INC-202101069000

PATIENT
  Age: 56 Year
  Sex: Male

DRUGS (9)
  1. FENTANYL CITRATE. [Suspect]
     Active Substance: FENTANYL CITRATE
     Dosage: UNK (500 UG/H WITH 100 UG Q15MIN GIVEN VIA A PATIENT?CONTROLLED ANALGESIA)
     Route: 042
  2. CALCITONIN [Concomitant]
     Active Substance: CALCITONIN
     Indication: BONE PAIN
     Dosage: 1 SPRAY DAILY
     Route: 045
  3. IBUPROFEN. [Concomitant]
     Active Substance: IBUPROFEN
     Indication: CANCER PAIN
     Dosage: 800 MG, 3X/DAY
     Route: 048
  4. FENTANYL CITRATE. [Suspect]
     Active Substance: FENTANYL CITRATE
     Indication: CANCER PAIN
     Dosage: UNK (600 UG/H)
     Route: 042
  5. PAMIDRONATE [Concomitant]
     Active Substance: PAMIDRONATE DISODIUM
     Indication: NON-SMALL CELL LUNG CANCER
     Dosage: 60 MG (SIX MONTHLY)
     Route: 042
  6. FENTANYL CITRATE. [Suspect]
     Active Substance: FENTANYL CITRATE
     Dosage: UNK (500 UG/H WITH 200 UG IV Q15MIN PRN)
     Route: 042
  7. FENTANYL CITRATE. [Suspect]
     Active Substance: FENTANYL CITRATE
     Dosage: UNK (450 UG/H WITH 100 UG EVERY 15 MIN)
     Route: 042
  8. STRONTIUM 89 CHLORIDE [Concomitant]
     Indication: NON-SMALL CELL LUNG CANCER
     Dosage: UNK
  9. MORPHINE SULFATE. [Suspect]
     Active Substance: MORPHINE SULFATE
     Indication: CANCER PAIN
     Dosage: 150 MG (Q2H, IMMEDIATE?RELEASE)
     Route: 048

REACTIONS (4)
  - Muscle twitching [Unknown]
  - Depressed level of consciousness [Unknown]
  - Drug ineffective [Recovered/Resolved]
  - Somnolence [Unknown]
